FAERS Safety Report 9197699 (Version 1)
Quarter: 2013Q1

REPORT INFORMATION
  Report Type: Spontaneous
  Country: US (occurrence: US)
  Receive Date: 20130328
  Receipt Date: 20130328
  Transmission Date: 20140127
  Serious: Yes (Hospitalization)
  Sender: FDA-Public Use
  Company Number: US-LUNDBECK-DKLU1089816

PATIENT
  Sex: Male

DRUGS (2)
  1. SABRIL [Suspect]
     Indication: INFANTILE SPASMS
     Route: 048
     Dates: start: 201104
  2. SABRIL [Suspect]
     Route: 048

REACTIONS (1)
  - Diabetes insipidus [Unknown]
